FAERS Safety Report 13870892 (Version 1)
Quarter: 2017Q3

REPORT INFORMATION
  Report Type: Spontaneous
  Country: LT (occurrence: LT)
  Receive Date: 20170816
  Receipt Date: 20170816
  Transmission Date: 20171127
  Serious: Yes (Hospitalization)
  Sender: FDA-Public Use
  Company Number: LT-ASTRAZENECA-2017SE82468

PATIENT
  Sex: Male

DRUGS (1)
  1. BYDUREON [Suspect]
     Active Substance: EXENATIDE
     Dosage: ONE TIME PER WEEK
     Route: 065
     Dates: start: 20161212

REACTIONS (3)
  - Gastrooesophageal cancer [Unknown]
  - Drug ineffective [Unknown]
  - Abdominal pain upper [Unknown]
